FAERS Safety Report 24747109 (Version 1)
Quarter: 2024Q4

REPORT INFORMATION
  Report Type: Spontaneous
  Country: CN (occurrence: CN)
  Receive Date: 20241218
  Receipt Date: 20241218
  Transmission Date: 20250115
  Serious: Yes (Hospitalization)
  Sender: STRIDES
  Company Number: CN-STRIDES ARCOLAB LIMITED-2024SP016615

PATIENT
  Age: 66 Year
  Sex: Female

DRUGS (4)
  1. TACROLIMUS [Suspect]
     Active Substance: TACROLIMUS
     Indication: Myasthenia gravis crisis
     Dosage: 3 MILLIGRAM, QD
     Route: 065
  2. PREDNISOLONE [Suspect]
     Active Substance: PREDNISOLONE
     Indication: Myasthenia gravis crisis
     Dosage: UNK
     Route: 065
  3. PREDNISOLONE [Suspect]
     Active Substance: PREDNISOLONE
     Indication: Myasthenia gravis
     Dosage: 30 MILLIGRAM, QD
     Route: 065
  4. PYRIDOSTIGMINE [Concomitant]
     Active Substance: PYRIDOSTIGMINE
     Indication: Myasthenia gravis
     Dosage: 60 MILLIGRAM, TID
     Route: 065

REACTIONS (3)
  - Condition aggravated [Recovered/Resolved]
  - Drug ineffective [Unknown]
  - Off label use [Unknown]
